FAERS Safety Report 15786840 (Version 1)
Quarter: 2019Q1

REPORT INFORMATION
  Report Type: Spontaneous
  Country: US (occurrence: US)
  Receive Date: 20190103
  Receipt Date: 20190103
  Transmission Date: 20190417
  Serious: Yes (Hospitalization)
  Sender: FDA-Public Use
  Company Number: US-PFIZER INC-2018534153

PATIENT
  Age: 74 Year
  Sex: Male

DRUGS (1)
  1. THROMBIN-JMI [Suspect]
     Active Substance: THROMBIN
     Indication: HAEMOSTASIS
     Dosage: UNK
     Route: 061

REACTIONS (3)
  - Anti factor V antibody positive [Recovered/Resolved]
  - Coagulopathy [Recovered/Resolved]
  - Factor V inhibition [Recovered/Resolved]
